FAERS Safety Report 18867828 (Version 2)
Quarter: 2021Q1

REPORT INFORMATION
  Report Type: Spontaneous
  Country: PT (occurrence: PT)
  Receive Date: 20210209
  Receipt Date: 20210330
  Transmission Date: 20210420
  Serious: Yes (Other)
  Sender: FDA-Public Use
  Company Number: PT-GLAXOSMITHKLINE-PT2021028004

PATIENT
  Age: 76 Year
  Sex: Male

DRUGS (1)
  1. AVAMYS [Suspect]
     Active Substance: FLUTICASONE FUROATE
     Indication: RHINITIS ALLERGIC
     Dosage: UNK
     Dates: start: 20200922, end: 202012

REACTIONS (17)
  - Rash [Not Recovered/Not Resolved]
  - Pneumonia [Not Recovered/Not Resolved]
  - Chest pain [Not Recovered/Not Resolved]
  - Otitis media [Not Recovered/Not Resolved]
  - Ageusia [Not Recovered/Not Resolved]
  - Drug ineffective [Not Recovered/Not Resolved]
  - Sneezing [Not Recovered/Not Resolved]
  - Anosmia [Not Recovered/Not Resolved]
  - Erythema [Not Recovered/Not Resolved]
  - Tinnitus [Not Recovered/Not Resolved]
  - Wheezing [Not Recovered/Not Resolved]
  - Therapy cessation [Unknown]
  - Asthenia [Not Recovered/Not Resolved]
  - Depression [Unknown]
  - Dizziness [Not Recovered/Not Resolved]
  - COVID-19 [Not Recovered/Not Resolved]
  - Rhinorrhoea [Not Recovered/Not Resolved]

NARRATIVE: CASE EVENT DATE: 20200922
